FAERS Safety Report 12192363 (Version 1)
Quarter: 2016Q1

REPORT INFORMATION
  Report Type: Spontaneous
  Country: CO (occurrence: CO)
  Receive Date: 20160318
  Receipt Date: 20160318
  Transmission Date: 20160526
  Serious: Yes (Hospitalization, Other)
  Sender: FDA-Public Use
  Company Number: CO-MYLANLABS-2016M1011460

PATIENT

DRUGS (7)
  1. AZATHIOPRINE. [Suspect]
     Active Substance: AZATHIOPRINE
     Indication: PEMPHIGUS
     Route: 065
     Dates: start: 2009
  2. RITUXIMAB [Suspect]
     Active Substance: RITUXIMAB
     Indication: PEMPHIGUS
     Dosage: 4 DOSES
     Route: 065
     Dates: start: 2009
  3. OXACILLIN [Suspect]
     Active Substance: OXACILLIN SODIUM
     Indication: PEMPHIGUS
     Route: 065
     Dates: start: 2009
  4. METHYLPREDNISOLONE. [Suspect]
     Active Substance: METHYLPREDNISOLONE
     Indication: PEMPHIGUS
     Route: 065
     Dates: start: 2009
  5. THALIDOMIDE [Concomitant]
     Active Substance: THALIDOMIDE
     Indication: PEMPHIGUS
     Route: 065
     Dates: start: 2009
  6. IMMUNE GLOBULIN [Suspect]
     Active Substance: HUMAN IMMUNOGLOBULIN G
     Indication: PEMPHIGUS
     Route: 042
     Dates: start: 2009
  7. PREDNISONE. [Suspect]
     Active Substance: PREDNISONE
     Indication: PEMPHIGUS
     Route: 065
     Dates: start: 2009

REACTIONS (4)
  - Myopathy [Unknown]
  - Cushing^s syndrome [Unknown]
  - Cataract [Unknown]
  - Skin infection [Unknown]
